FAERS Safety Report 8614114-3 (Version None)
Quarter: 2012Q3

REPORT INFORMATION
  Report Type: 
  Country: None (occurrence: None)
  Receive Date: 20120823
  Receipt Date: 20120815
  Transmission Date: 20120928
  Serious: Yes (Hospitalization)
  Sender: FDA-Public Use
  Company Number: US-BAYER-2012-046688

PATIENT
  Age: 32 Year
  Sex: Female

DRUGS (6)
  1. YASMIN [Suspect]
     Dosage: UNK
     Dates: start: 20011101, end: 20030501
  2. LISINOPRIL [Concomitant]
     Dosage: 5 MG, UNK
     Route: 048
  3. LORTAB [Concomitant]
  4. PREVACID [Concomitant]
     Route: 048
  5. DURADRIN [Concomitant]
     Route: 048
  6. MIDRIN [Concomitant]
     Dosage: UNK UNK, PRN
     Route: 048

REACTIONS (7)
  - ANXIETY [None]
  - EMOTIONAL DISTRESS [None]
  - GENERAL PHYSICAL HEALTH DETERIORATION [None]
  - ASTHENIA [None]
  - PORTAL VEIN THROMBOSIS [None]
  - PAIN [None]
  - INJURY [None]
